FAERS Safety Report 15654237 (Version 1)
Quarter: 2018Q4

REPORT INFORMATION
  Report Type: Spontaneous
  Country: US (occurrence: US)
  Receive Date: 20181125
  Receipt Date: 20181125
  Transmission Date: 20190205
  Serious: No
  Sender: FDA-Public Use
  Company Number: US-ELI_LILLY_AND_COMPANY-US201811010662

PATIENT
  Sex: Female

DRUGS (2)
  1. HUMULIN R U-500 [Suspect]
     Active Substance: INSULIN HUMAN
     Indication: TYPE 2 DIABETES MELLITUS
     Dosage: 100 U, BID
  2. HUMULIN R U-500 [Suspect]
     Active Substance: INSULIN HUMAN
     Dosage: 90 U, EACH EVENING

REACTIONS (2)
  - Vision blurred [Recovering/Resolving]
  - Sinusitis [Recovering/Resolving]
